FAERS Safety Report 17347141 (Version 1)
Quarter: 2020Q1

REPORT INFORMATION
  Report Type: Spontaneous
  Country: US (occurrence: US)
  Receive Date: 20200115
  Receipt Date: 20200115
  Transmission Date: 20200409
  Serious: Yes (Hospitalization)
  Sender: FDA-Public Use
  Company Number: None

PATIENT
  Age: 52 Year
  Sex: Female

DRUGS (3)
  1. HUMIRA [Suspect]
     Active Substance: ADALIMUMAB
     Indication: COLITIS ULCERATIVE
     Dosage: ?          OTHER FREQUENCY:QOWK ;?
     Route: 058
     Dates: start: 20170711
  2. NEUPRO DIS 3MG/24HR [Concomitant]
  3. NEUPRO DIS 2MG/24HR [Concomitant]

REACTIONS (2)
  - Therapy cessation [None]
  - Shoulder operation [None]

NARRATIVE: CASE EVENT DATE: 20191201
